FAERS Safety Report 9795274 (Version 1)
Quarter: 2014Q1

REPORT INFORMATION
  Report Type: Spontaneous
  Country: US (occurrence: US)
  Receive Date: 20140103
  Receipt Date: 20140103
  Transmission Date: 20141002
  Serious: Yes (Other)
  Sender: FDA-Public Use
  Company Number: US-ROCHE-1328401

PATIENT
  Age: 34 Year
  Sex: Female

DRUGS (3)
  1. ZELBORAF [Suspect]
     Indication: METASTATIC MALIGNANT MELANOMA
     Route: 065
  2. ZELBORAF [Suspect]
     Route: 065
  3. ZELBORAF [Suspect]
     Dosage: 720MG DAILY IN SPLIT DOSES
     Route: 065

REACTIONS (5)
  - Pericardial effusion [Recovered/Resolved]
  - Pericarditis [Unknown]
  - Erythema nodosum [Recovered/Resolved]
  - Blister [Unknown]
  - Photosensitivity reaction [Unknown]
